FAERS Safety Report 25379956 (Version 1)
Quarter: 2025Q2

REPORT INFORMATION
  Report Type: Spontaneous
  Country: FR (occurrence: FR)
  Receive Date: 20250530
  Receipt Date: 20250530
  Transmission Date: 20250717
  Serious: Yes (Hospitalization, Other)
  Sender: SANOFI AVENTIS
  Company Number: FR-DialogSolutions-SAAVPROD-PI720674-C1

PATIENT
  Age: 77 Year
  Sex: Male

DRUGS (3)
  1. OFLOXACIN [Suspect]
     Active Substance: OFLOXACIN
     Indication: Antibiotic prophylaxis
  2. RIFAMPIN [Suspect]
     Active Substance: RIFAMPIN
     Indication: Disseminated Bacillus Calmette-Guerin infection
  3. BCG VACCINE [Concomitant]
     Active Substance: BCG VACCINE
     Indication: Bladder neoplasm

REACTIONS (6)
  - Disseminated Bacillus Calmette-Guerin infection [Recovering/Resolving]
  - Cough [Recovering/Resolving]
  - Dyspnoea [Recovering/Resolving]
  - Pyrexia [Recovered/Resolved]
  - Treatment failure [Recovering/Resolving]
  - Hepatic cytolysis [Unknown]
